FAERS Safety Report 21069055 (Version 1)
Quarter: 2022Q3

REPORT INFORMATION
  Report Type: Spontaneous
  Country: US (occurrence: None)
  Receive Date: 20220711
  Receipt Date: 20220711
  Transmission Date: 20221027
  Serious: No
  Sender: FDA-Public Use
  Company Number: None

PATIENT
  Age: 32 Year
  Sex: Female
  Weight: 63 kg

DRUGS (4)
  1. QBREXZA [Suspect]
     Active Substance: GLYCOPYRRONIUM TOSYLATE
     Indication: Hyperhidrosis
     Dates: start: 20220628, end: 20220708
  2. TOPIRAMATE [Concomitant]
     Active Substance: TOPIRAMATE
  3. CELEXA [Concomitant]
     Active Substance: CITALOPRAM HYDROBROMIDE
  4. CONCERTA [Concomitant]
     Active Substance: METHYLPHENIDATE HYDROCHLORIDE

REACTIONS (10)
  - Fatigue [None]
  - Nausea [None]
  - Gastrointestinal disorder [None]
  - Dry mouth [None]
  - Pyrexia [None]
  - Aptyalism [None]
  - Oropharyngeal pain [None]
  - Nasal dryness [None]
  - Epistaxis [None]
  - Vomiting [None]

NARRATIVE: CASE EVENT DATE: 20220708
